FAERS Safety Report 4589628-6 (Version None)
Quarter: 2005Q1

REPORT INFORMATION
  Report Type: 
  Country: None (occurrence: None)
  Receive Date: 20050223
  Receipt Date: 20050216
  Transmission Date: 20050727
  Serious: Yes (Hospitalization, Disabling)
  Sender: FDA-Public Use
  Company Number: SE-MERCK-0502SWE00021

PATIENT
  Age: 62 Year
  Sex: Female

DRUGS (4)
  1. VIOXX [Suspect]
     Indication: PSORIATIC ARTHROPATHY
     Route: 048
     Dates: start: 20011001, end: 20040601
  2. ASPIRIN [Concomitant]
     Route: 065
  3. CYANOCOBALAMIN [Concomitant]
     Route: 065
  4. CALCIUM PANTOTHENATE [Concomitant]
     Route: 065

REACTIONS (2)
  - BLINDNESS UNILATERAL [None]
  - CEREBROVASCULAR ACCIDENT [None]
